FAERS Safety Report 19708335 (Version 1)
Quarter: 2021Q3

REPORT INFORMATION
  Report Type: Spontaneous
  Country: FR (occurrence: FR)
  Receive Date: 20210816
  Receipt Date: 20210816
  Transmission Date: 20211014
  Serious: Yes (Hospitalization)
  Sender: FDA-Public Use
  Company Number: FR-009507513-2107FRA002662

PATIENT
  Age: 73 Year
  Sex: Male
  Weight: 62 kg

DRUGS (2)
  1. INLYTA [Suspect]
     Active Substance: AXITINIB
     Indication: CLEAR CELL RENAL CELL CARCINOMA
     Dosage: 5 MILLIGRAM, Q12H
     Route: 048
     Dates: start: 20210420
  2. KEYTRUDA [Suspect]
     Active Substance: PEMBROLIZUMAB
     Indication: CLEAR CELL RENAL CELL CARCINOMA
     Dosage: 200 MILLIGRAM, Q3W (EVERY 21 DAYS)
     Route: 041
     Dates: start: 20210420, end: 20210601

REACTIONS (3)
  - Hyperthyroidism [Recovering/Resolving]
  - Myasthenic syndrome [Not Recovered/Not Resolved]
  - Coronary artery stenosis [Recovered/Resolved]

NARRATIVE: CASE EVENT DATE: 20210601
